FAERS Safety Report 17423339 (Version 1)
Quarter: 2020Q1

REPORT INFORMATION
  Report Type: Spontaneous
  Country: US (occurrence: US)
  Receive Date: 20200217
  Receipt Date: 20200217
  Transmission Date: 20200409
  Serious: No
  Sender: FDA-Public Use
  Company Number: US-GLAXOSMITHKLINE-US2020022387

PATIENT
  Sex: Female

DRUGS (2)
  1. ANORO ELLIPTA [Suspect]
     Active Substance: UMECLIDINIUM BROMIDE\VILANTEROL TRIFENATATE
     Indication: CHRONIC OBSTRUCTIVE PULMONARY DISEASE
     Dosage: 1 PUFF(S), QD
     Route: 065
     Dates: start: 2019
  2. ANORO ELLIPTA [Suspect]
     Active Substance: UMECLIDINIUM BROMIDE\VILANTEROL TRIFENATATE
     Dosage: 1 PUFF(S), QOD
     Route: 065
     Dates: start: 2020

REACTIONS (8)
  - Condition aggravated [Recovered/Resolved]
  - Dry eye [Unknown]
  - Chest discomfort [Recovered/Resolved]
  - Respiratory tract congestion [Recovered/Resolved]
  - Prescribed underdose [Unknown]
  - Cough [Recovered/Resolved]
  - Eye discharge [Recovered/Resolved]
  - Constipation [Unknown]

NARRATIVE: CASE EVENT DATE: 2019
